FAERS Safety Report 19485794 (Version 1)
Quarter: 2021Q2

REPORT INFORMATION
  Report Type: Spontaneous
  Country: US (occurrence: US)
  Receive Date: 20210630
  Receipt Date: 20210630
  Transmission Date: 20210717
  Serious: Yes (Other)
  Sender: FDA-Public Use
  Company Number: None

PATIENT
  Age: 21 Year
  Sex: Female
  Weight: 58.5 kg

DRUGS (2)
  1. DEXTROSE INJECTION 12.5% [Suspect]
     Active Substance: DEXTROSE
     Indication: DEVELOPMENTAL HIP DYSPLASIA
     Dosage: ?          OTHER FREQUENCY:ONCE;?
     Route: 052
  2. ROPIVACAINE. [Suspect]
     Active Substance: ROPIVACAINE HYDROCHLORIDE

REACTIONS (10)
  - Depressed mood [None]
  - Paraesthesia [None]
  - Fatigue [None]
  - Palpitations [None]
  - Concussion [None]
  - Muscular weakness [None]
  - Throat tightness [None]
  - Headache [None]
  - Dizziness [None]
  - Flushing [None]

NARRATIVE: CASE EVENT DATE: 20210201
